FAERS Safety Report 16009305 (Version 1)
Quarter: 2019Q1

REPORT INFORMATION
  Report Type: Report from Study
  Country: None (occurrence: US)
  Receive Date: 20190226
  Receipt Date: 20190226
  Transmission Date: 20190418
  Serious: Yes (Other)
  Sender: FDA-Public Use
  Company Number: US-ABBVIE-19K-163-2666193-00

PATIENT
  Sex: Male

DRUGS (2)
  1. HUMIRA [Suspect]
     Active Substance: ADALIMUMAB
     Route: 058
  2. HUMIRA [Suspect]
     Active Substance: ADALIMUMAB
     Indication: ANKYLOSING SPONDYLITIS
     Dosage: STOPPED DUE TO FINANCIAL REASONS
     Route: 058
     Dates: start: 2010

REACTIONS (5)
  - Asthenia [Unknown]
  - Mobility decreased [Unknown]
  - Impaired work ability [Unknown]
  - Ankylosing spondylitis [Unknown]
  - Joint injury [Unknown]
